FAERS Safety Report 8873234 (Version 1)
Quarter: 2012Q4

REPORT INFORMATION
  Report Type: 
  Country: US (occurrence: US)
  Receive Date: 20121026
  Receipt Date: 20121026
  Transmission Date: 20130627
  Serious: No
  Sender: FDA-Public Use
  Company Number: US-AMGEN-USASP2012050445

PATIENT
  Sex: Female
  Weight: 81.63 kg

DRUGS (5)
  1. ENBREL [Suspect]
     Indication: PRODUCT USED FOR UNKNOWN INDICATION
     Dosage: 50 mg, qwk
     Route: 058
  2. VICODIN [Concomitant]
     Dosage: 5-500 mg, UNK
  3. TYLENOL /00020001/ [Concomitant]
     Dosage: 650 mg, 8 HR
  4. METOPROLOL [Concomitant]
     Indication: BLOOD PRESSURE INCREASED
     Dosage: 25 mg, ER
  5. LORAZEPAM [Concomitant]
     Dosage: 1 mg, UNK

REACTIONS (2)
  - Sinusitis [Unknown]
  - Blood pressure increased [Unknown]
